FAERS Safety Report 7011035-7 (Version None)
Quarter: 2010Q3

REPORT INFORMATION
  Report Type: 
  Country: None (occurrence: None)
  Receive Date: 20100922
  Receipt Date: 20100922
  Transmission Date: 20110219
  Serious: Yes (Hospitalization)
  Sender: FDA-Public Use
  Company Number: None

PATIENT
  Age: 57 Year
  Sex: Male

DRUGS (9)
  1. HALOPERIDOL [Suspect]
     Indication: AGGRESSION
     Dosage: 10 MG STATE IM
     Route: 030
     Dates: start: 20100809, end: 20100809
  2. OXCARBAZEPINE [Suspect]
     Indication: AFFECTIVE DISORDER
     Dosage: 300 MG BID PO
     Route: 048
     Dates: start: 20100805, end: 20100809
  3. LORAZEPAM [Concomitant]
  4. ZIPRASIDONE HCL [Concomitant]
  5. LITHIUM CARBONATE [Concomitant]
  6. QUETIAPINE [Concomitant]
  7. CLONAZEPAM [Concomitant]
  8. METFORMIN [Concomitant]
  9. GLIPIZIDE [Concomitant]

REACTIONS (7)
  - AGGRESSION [None]
  - CATATONIA [None]
  - CONFUSIONAL STATE [None]
  - DRUG INTERACTION [None]
  - MENTAL STATUS CHANGES [None]
  - SLEEP DISORDER [None]
  - TREMOR [None]
